FAERS Safety Report 4915895-2 (Version None)
Quarter: 2006Q1

REPORT INFORMATION
  Report Type: 
  Country: None (occurrence: None)
  Receive Date: 20060214
  Receipt Date: 20060201
  Transmission Date: 20060701
  Serious: Yes (Other)
  Sender: FDA-Public Use
  Company Number: 2005123610

PATIENT
  Sex: Male
  Weight: 90.7194 kg

DRUGS (7)
  1. NEURONTIN [Suspect]
     Indication: POST HERPETIC NEURALGIA
     Dates: start: 20040301
  2. LYRICA [Suspect]
     Indication: POST HERPETIC NEURALGIA
     Dosage: 75 MG (75 MG, 1 IN 1 D)
     Dates: start: 20050826
  3. XANAX [Suspect]
     Indication: SLEEP DISORDER
     Dosage: 0.5 MG (0.5 MG, 1 IN 1 D)
  4. IBUPROFEN [Suspect]
     Indication: HERPES ZOSTER
     Dates: start: 20040101, end: 20040101
  5. OXYCODONE HCL [Suspect]
     Indication: POST HERPETIC NEURALGIA
  6. HYDROCODONE BITARTRATE [Concomitant]
  7. CYMBALTA [Concomitant]

REACTIONS (11)
  - BALANCE DISORDER [None]
  - DEPRESSED MOOD [None]
  - DRUG INEFFECTIVE [None]
  - FORMICATION [None]
  - IMPAIRED DRIVING ABILITY [None]
  - INSOMNIA [None]
  - ROAD TRAFFIC ACCIDENT [None]
  - ROTATOR CUFF SYNDROME [None]
  - TENDON RUPTURE [None]
  - VERTIGO [None]
  - VISUAL ACUITY REDUCED [None]
